FAERS Safety Report 17631831 (Version 1)
Quarter: 2020Q2

REPORT INFORMATION
  Report Type: Report from Study
  Country: BR (occurrence: BR)
  Receive Date: 20200406
  Receipt Date: 20200406
  Transmission Date: 20200713
  Serious: Yes (Hospitalization, Other)
  Sender: FDA-Public Use
  Company Number: BR-ELI_LILLY_AND_COMPANY-BR201912006166

PATIENT
  Age: 56 Year
  Sex: Male

DRUGS (1)
  1. TERIPARATIDE [Suspect]
     Active Substance: TERIPARATIDE
     Indication: PRODUCT USED FOR UNKNOWN INDICATION
     Dosage: UNK, UNKNOWN
     Route: 065
     Dates: start: 20190711

REACTIONS (5)
  - Renal failure [Unknown]
  - Urine abnormality [Unknown]
  - Speech disorder [Unknown]
  - Throat tightness [Unknown]
  - Nipple pain [Unknown]

NARRATIVE: CASE EVENT DATE: 20191115
